FAERS Safety Report 12254625 (Version 1)
Quarter: 2016Q2

REPORT INFORMATION
  Report Type: Spontaneous
  Country: US (occurrence: US)
  Receive Date: 20160411
  Receipt Date: 20160411
  Transmission Date: 20160815
  Serious: No
  Sender: FDA-Public Use
  Company Number: US-SA-2015SA044331

PATIENT
  Age: 59 Year
  Sex: Female

DRUGS (1)
  1. ALLEGRA-D [Suspect]
     Active Substance: FEXOFENADINE\PSEUDOEPHEDRINE
     Indication: MULTIPLE ALLERGIES
     Dosage: TAKEN FROM: LAST YEAR
     Route: 048

REACTIONS (5)
  - Therapeutic response decreased [Unknown]
  - Feeling abnormal [Unknown]
  - Underdose [Unknown]
  - Dyspnoea [Unknown]
  - Pruritus [Unknown]
